FAERS Safety Report 4500734-4 (Version None)
Quarter: 2004Q4

REPORT INFORMATION
  Report Type: 
  Country: None (occurrence: None)
  Receive Date: 20041109
  Receipt Date: 20041026
  Transmission Date: 20050328
  Serious: Yes (Other)
  Sender: FDA-Public Use
  Company Number: USA041081940

PATIENT
  Age: 52 Year
  Sex: Female
  Weight: 75 kg

DRUGS (9)
  1. CYMBALTA [Suspect]
     Indication: DEPRESSION
     Dosage: 60 MG DAY
     Dates: start: 20041004, end: 20041021
  2. LEXAPRO [Concomitant]
  3. MOBIC [Concomitant]
  4. ZELNORM [Concomitant]
  5. THYROID THERAPY [Concomitant]
  6. SKELAXIN [Concomitant]
  7. METFORMIN [Concomitant]
  8. AMBIEN [Concomitant]
  9. TOPAMAX [Concomitant]

REACTIONS (3)
  - BLOOD PRESSURE INCREASED [None]
  - DYSPNOEA [None]
  - HEADACHE [None]
